FAERS Safety Report 9290422 (Version 1)
Quarter: 2013Q2

REPORT INFORMATION
  Report Type: Spontaneous
  Country: US (occurrence: None)
  Receive Date: 20130514
  Receipt Date: 20130514
  Transmission Date: 20140414
  Serious: Yes (Life-Threatening, Disabling, Other)
  Sender: FDA-Public Use
  Company Number: None

PATIENT
  Age: 13 Year
  Sex: Male
  Weight: 70.76 kg

DRUGS (5)
  1. RISPERDAL [Suspect]
  2. CELEXA [Suspect]
     Indication: MENTAL DISORDER
     Dosage: 0.125MG AND 5 MG?2 DRUGS?BEDTIMES?MOUTH
     Dates: start: 20120310, end: 20130510
  3. CELEXA [Suspect]
     Indication: ABNORMAL BEHAVIOUR
     Dosage: 0.125MG AND 5 MG?2 DRUGS?BEDTIMES?MOUTH
     Dates: start: 20120310, end: 20130510
  4. CELEXA [Suspect]
     Indication: ANXIETY
     Dosage: 0.125MG AND 5 MG?2 DRUGS?BEDTIMES?MOUTH
     Dates: start: 20120310, end: 20130510
  5. CELEXA [Suspect]
     Indication: MUSCLE RIGIDITY
     Dosage: 0.125MG AND 5 MG?2 DRUGS?BEDTIMES?MOUTH
     Dates: start: 20120310, end: 20130510

REACTIONS (7)
  - Mental disorder [None]
  - Abnormal behaviour [None]
  - Withdrawal syndrome [None]
  - Emotional disorder [None]
  - Surgery [None]
  - Condition aggravated [None]
  - Therapy cessation [None]
